FAERS Safety Report 8249577 (Version 2)
Quarter: 2013Q2

REPORT INFORMATION
  Report Type: Spontaneous
  Country: US (occurrence: US)
  Receive Date: 20111117
  Receipt Date: 20130417
  Transmission Date: 20140414
  Serious: Yes (Other)
  Sender: FDA-Public Use
  Company Number: US-GLAXOSMITHKLINE-A0725154A

PATIENT
  Age: 65 Year
  Sex: Male
  Weight: 117.7 kg

DRUGS (3)
  1. ROSIGLITAZONE MALEATE [Suspect]
     Indication: TYPE 2 DIABETES MELLITUS
     Dosage: 8MG PER DAY
     Route: 048
     Dates: start: 200408, end: 200709
  2. HUMALOG [Concomitant]
     Dates: start: 198603
  3. GLUCOTROL [Concomitant]
     Dates: start: 2004

REACTIONS (2)
  - Cardiac failure congestive [Unknown]
  - Heart injury [Unknown]
